FAERS Safety Report 12725278 (Version 1)
Quarter: 2016Q3

REPORT INFORMATION
  Report Type: Spontaneous
  Country: US (occurrence: US)
  Receive Date: 20160908
  Receipt Date: 20160908
  Transmission Date: 20161109
  Serious: No
  Sender: FDA-Public Use
  Company Number: US-MEDA-2016080097

PATIENT
  Age: 68 Year
  Sex: Female
  Weight: 54 kg

DRUGS (1)
  1. MUSE [Suspect]
     Active Substance: ALPROSTADIL

REACTIONS (3)
  - Paraesthesia oral [Recovered/Resolved]
  - Dysgeusia [Recovered/Resolved]
  - Exposure via partner [Unknown]

NARRATIVE: CASE EVENT DATE: 20160824
